FAERS Safety Report 7962831-0 (Version None)
Quarter: 2011Q4

REPORT INFORMATION
  Report Type: 
  Country: None (occurrence: None)
  Receive Date: 20111207
  Receipt Date: 20111128
  Transmission Date: 20120403
  Serious: Yes (Hospitalization)
  Sender: FDA-Public Use
  Company Number: FR-PFIZER INC-2011212165

PATIENT
  Age: 79 Year
  Sex: Female

DRUGS (13)
  1. ZOLPIDEM [Suspect]
     Dosage: 1 DF, 1X/DAY
     Route: 048
     Dates: start: 20100224, end: 20110928
  2. PAROXETINE HCL [Suspect]
     Dosage: 1 DF DAILY
     Route: 048
     Dates: start: 20100706, end: 20110701
  3. BONIVA [Suspect]
     Dosage: UNK
     Route: 048
     Dates: start: 20100201, end: 20110520
  4. ATORVASTATIN CALCIUM [Suspect]
     Dosage: 10 MG, 1X/DAY
     Route: 048
     Dates: start: 20100723, end: 20110425
  5. BISOPROLOL FUMARATE [Suspect]
     Dosage: 1 DF, 1X/DAY
     Route: 048
     Dates: start: 20100224
  6. ESIDRIX [Suspect]
     Dosage: 1 DF, 1X/DAY
     Route: 048
     Dates: start: 20100201, end: 20110420
  7. ACETAMINOPHEN [Suspect]
     Dosage: UNK
     Route: 048
     Dates: start: 20100224
  8. LEXOMIL [Suspect]
     Dosage: 12 MG, UNK
     Route: 048
     Dates: start: 20100817, end: 20110427
  9. PANTOPRAZOLE SODIUM [Suspect]
     Dosage: 1 DF, 1X/DAY
     Route: 048
     Dates: start: 20100224
  10. PAROXETINE HCL [Suspect]
     Dosage: 0.5 DF DAILY
     Dates: start: 20110701
  11. ASPIRIN [Suspect]
     Dosage: 1 DF, 1X/DAY
     Route: 048
     Dates: start: 20100224
  12. FORLAX [Suspect]
     Dosage: 1 DF, 1X/DAY
     Route: 048
     Dates: start: 20100224
  13. EQUANIL [Suspect]
     Dosage: 250 MG, UNK
     Route: 048
     Dates: start: 20101112, end: 20110513

REACTIONS (4)
  - PRURIGO [None]
  - PRURITUS [None]
  - EOSINOPHILIA [None]
  - ECZEMA [None]
